FAERS Safety Report 6000061-2 (Version None)
Quarter: 2008Q4

REPORT INFORMATION
  Report Type: 
  Country: None (occurrence: None)
  Receive Date: 20081215
  Receipt Date: 20081208
  Transmission Date: 20090506
  Serious: Yes (Hospitalization)
  Sender: FDA-Public Use
  Company Number: B0545359A

PATIENT
  Age: 59 Year
  Sex: Female

DRUGS (2)
  1. ZENTAL [Suspect]
     Route: 048
     Dates: start: 20081001, end: 20081017
  2. CHINESE MEDICATION [Concomitant]
     Indication: HYPERTENSION

REACTIONS (4)
  - ANOREXIA [None]
  - ASTHENIA [None]
  - HEPATIC ENZYME INCREASED [None]
  - OVERDOSE [None]
